FAERS Safety Report 4290050-0 (Version None)
Quarter: 2004Q1

REPORT INFORMATION
  Report Type: 
  Country: None (occurrence: None)
  Receive Date: 20040209
  Receipt Date: 20040119
  Transmission Date: 20041129
  Serious: Yes (Other)
  Sender: FDA-Public Use
  Company Number: US064568

PATIENT
  Age: 31 Year
  Sex: Female

DRUGS (3)
  1. ENBREL [Suspect]
     Indication: RHEUMATOID ARTHRITIS
     Dosage: 25 MG, 2 IN 1 WEEKS, SC
     Route: 058
     Dates: start: 20030117
  2. METHOTREXATE [Suspect]
     Dosage: 22.5 MG, 1 IN 1 WEEKS, PO
     Route: 048
     Dates: start: 20010612
  3. ORAL CONTRACEPTIVE NOS [Concomitant]

REACTIONS (2)
  - POSTOPERATIVE WOUND COMPLICATION [None]
  - WOUND DEHISCENCE [None]
